FAERS Safety Report 7709825-8 (Version None)
Quarter: 2011Q3

REPORT INFORMATION
  Report Type: 
  Country: None (occurrence: None)
  Receive Date: 20110825
  Receipt Date: 20110819
  Transmission Date: 20111222
  Serious: Yes (Other)
  Sender: FDA-Public Use
  Company Number: ES-MERCK-1108ESP00020

PATIENT
  Age: 75 Year
  Sex: Female

DRUGS (10)
  1. ALENDRONATE SODIUM [Concomitant]
     Indication: OSTEOPOROSIS
     Route: 048
     Dates: start: 20080926
  2. OMEPRAZOLE [Concomitant]
     Indication: DYSPEPSIA
     Route: 048
     Dates: start: 20081118
  3. CLORAZEPATE DIPOTASSIUM [Concomitant]
     Indication: ANXIETY
     Route: 048
     Dates: start: 20081118
  4. DIPYRONE [Concomitant]
     Indication: OSTEOARTHRITIS
     Route: 048
     Dates: start: 20100823
  5. SIMVASTATIN [Concomitant]
     Indication: HYPERCHOLESTEROLAEMIA
     Route: 048
     Dates: start: 20080926
  6. CALCIUM CARBONATE AND CHOLECALCIFEROL [Concomitant]
     Indication: OSTEOPOROSIS
     Route: 048
     Dates: start: 20110112
  7. METFORMIN HYDROCHLORIDE [Concomitant]
     Indication: TYPE 2 DIABETES MELLITUS
     Route: 048
     Dates: start: 20080926
  8. JANUVIA [Suspect]
     Indication: TYPE 2 DIABETES MELLITUS
     Route: 048
     Dates: start: 20110617, end: 20110630
  9. XIPAMIDE [Concomitant]
     Indication: HYPERTENSION
     Route: 048
     Dates: start: 20080926
  10. ACETAMINOPHEN AND TRAMADOL HYDROCHLORIDE [Concomitant]
     Indication: OSTEOARTHRITIS
     Route: 048
     Dates: start: 20090304

REACTIONS (3)
  - MYALGIA [None]
  - ARTHRALGIA [None]
  - OEDEMA PERIPHERAL [None]
